FAERS Safety Report 24767002 (Version 1)
Quarter: 2024Q4

REPORT INFORMATION
  Report Type: Spontaneous
  Country: US (occurrence: US)
  Receive Date: 20241223
  Receipt Date: 20241223
  Transmission Date: 20250115
  Serious: Yes (Death, Other)
  Sender: AMGEN
  Company Number: US-AMGEN-USASP2024251303

PATIENT

DRUGS (1)
  1. PREDNISONE [Suspect]
     Active Substance: PREDNISONE
     Indication: Immunosuppressant drug therapy
     Dosage: 5 MILLIGRAM, QD
     Route: 065

REACTIONS (9)
  - Death [Fatal]
  - Infection [Fatal]
  - Transplant failure [Unknown]
  - Leukopenia [Unknown]
  - Cytomegalovirus infection reactivation [Unknown]
  - Neoplasm malignant [Unknown]
  - Transplant rejection [Unknown]
  - BK virus infection [Unknown]
  - Gastrointestinal disorder [Unknown]
